FAERS Safety Report 4991084-0 (Version None)
Quarter: 2006Q2

REPORT INFORMATION
  Report Type: 
  Country: None (occurrence: None)
  Receive Date: 20060428
  Receipt Date: 20050607
  Transmission Date: 20061013
  Serious: Yes (Other)
  Sender: FDA-Public Use
  Company Number: 26771

PATIENT
  Sex: Female

DRUGS (1)
  1. ALDARA [Suspect]
     Indication: VAGINAL DYSPLASIA
     Dosage: UNSPEC.,, 3 IN 1 WEEK(S), VAGINAL
     Route: 067
     Dates: start: 20050530

REACTIONS (10)
  - BACK PAIN [None]
  - COUGH [None]
  - DIZZINESS [None]
  - FEELING HOT [None]
  - HEADACHE [None]
  - MYALGIA [None]
  - NAUSEA [None]
  - PALPITATIONS [None]
  - PHARYNGOLARYNGEAL PAIN [None]
  - VAGINAL DISCHARGE [None]
